FAERS Safety Report 7082316-6 (Version None)
Quarter: 2010Q4

REPORT INFORMATION
  Report Type: 
  Country: None (occurrence: None)
  Receive Date: 20101104
  Receipt Date: 20101021
  Transmission Date: 20110411
  Serious: Yes (Hospitalization)
  Sender: FDA-Public Use
  Company Number: JP-RANBAXY-2010RR-38228

PATIENT
  Sex: Female

DRUGS (30)
  1. ACETAMINOPHEN [Suspect]
     Dosage: UNK
     Dates: start: 20100618
  2. ACETAMINOPHEN [Suspect]
     Dosage: UNK
     Dates: start: 20100622
  3. LEVOFLOXACIN [Suspect]
     Indication: UPPER RESPIRATORY TRACT INFLAMMATION
     Dosage: 100 MG, TID
     Route: 048
     Dates: start: 20100407, end: 20100705
  4. CLARITHROMYCIN [Concomitant]
     Dosage: UNK
     Dates: start: 20100618, end: 20100705
  5. CALONAL [Concomitant]
     Dosage: UNK
     Dates: start: 20100705
  6. PULSMARIN A [Concomitant]
     Dosage: UNK
     Dates: start: 20100618
  7. PULSMARIN A [Concomitant]
     Dosage: UNK
     Dates: start: 20100705
  8. TELGIN G [Concomitant]
     Dosage: UNK
     Dates: start: 20100618
  9. TELGIN G [Concomitant]
     Dosage: UNK
     Dates: start: 20100704
  10. TELGIN G [Concomitant]
     Dosage: UNK
     Dates: start: 20100705
  11. ASVERIN [Concomitant]
     Dosage: UNK
     Dates: start: 20100618
  12. ASVERIN [Concomitant]
     Dosage: UNK
     Dates: start: 20100705
  13. CERCINE [Concomitant]
     Dosage: UNK
     Dates: start: 20100618
  14. CERCINE [Concomitant]
     Dosage: UNK
     Dates: start: 20100622
  15. ROBAXIN [Concomitant]
     Dosage: UNK
     Dates: start: 20100618
  16. ROBAXIN [Concomitant]
     Dosage: UNK
     Dates: start: 20100622
  17. PONTAL [Concomitant]
     Dosage: UNK
     Dates: start: 20100618
  18. PONTAL [Concomitant]
     Dosage: UNK
     Dates: start: 20100622
  19. CAFFEINE [Concomitant]
     Dosage: UNK
     Dates: start: 20100618
  20. CAFFEINE [Concomitant]
     Dosage: UNK
     Dates: start: 20100622
  21. ALUMIGEL [Concomitant]
     Dosage: UNK
     Dates: start: 20100618
  22. ALUMIGEL [Concomitant]
     Dosage: UNK
     Dates: start: 20100622
  23. KETOPROFEN [Concomitant]
     Dosage: UNK
     Dates: start: 20100618
  24. KETOPROFEN [Concomitant]
     Dosage: UNK
     Dates: start: 20100622
  25. AZUNOL GARGLE LIQUID [Concomitant]
  26. BROCIN CODEINE [Concomitant]
     Route: 065
  27. APRICOT KERNEL WATER [Concomitant]
     Route: 065
  28. SIMPLE SYRUP [Concomitant]
     Route: 065
  29. HOKUNALIN: TAPE [Concomitant]
     Dosage: UNK
     Route: 065
     Dates: start: 20100622
  30. COLDRIN [Concomitant]
     Dosage: 25 MG, TID
     Route: 065
     Dates: start: 20100407

REACTIONS (3)
  - PHOTOSENSITIVITY REACTION [None]
  - THROMBOCYTOPENIA [None]
  - TOXIC SKIN ERUPTION [None]
